FAERS Safety Report 6783184-X (Version None)
Quarter: 2010Q2

REPORT INFORMATION
  Report Type: 
  Country: None (occurrence: None)
  Receive Date: 20100622
  Receipt Date: 20100611
  Transmission Date: 20101027
  Serious: Yes (Hospitalization)
  Sender: FDA-Public Use
  Company Number: FR-PFIZER INC-2010075935

PATIENT
  Age: 83 Year
  Sex: Female

DRUGS (12)
  1. ATARAX [Suspect]
     Indication: PRURITUS
     Dosage: 25 MG, UNK
     Route: 048
     Dates: start: 20100304, end: 20100319
  2. ATARAX [Suspect]
     Dosage: UNK
     Route: 048
     Dates: start: 20100331, end: 20100401
  3. ZYRTEC [Suspect]
     Indication: HYPERSENSITIVITY
     Dosage: 10 MG, 2X/DAY
     Route: 048
     Dates: start: 20100304, end: 20100319
  4. ROCEPHIN [Suspect]
     Indication: BRONCHITIS
     Dosage: 1 G, UNK
     Route: 042
     Dates: start: 20100304, end: 20100308
  5. OFLOXACIN [Suspect]
     Indication: BRONCHITIS
     Dosage: 200 MG, UNK
     Route: 048
     Dates: start: 20100302, end: 20100311
  6. DIFFU K [Suspect]
  7. CALCIPARINE [Suspect]
     Dosage: 5000 IU, 2X/DAY
     Route: 058
     Dates: start: 20100302, end: 20100313
  8. ZANIDIP [Concomitant]
  9. SOTALOL [Concomitant]
  10. COAPROVEL [Concomitant]
  11. METFORMIN [Concomitant]
  12. CRESTOR [Concomitant]

REACTIONS (2)
  - EOSINOPHILIA [None]
  - RASH MORBILLIFORM [None]
